FAERS Safety Report 7610311-4 (Version None)
Quarter: 2011Q3

REPORT INFORMATION
  Report Type: 
  Country: None (occurrence: None)
  Receive Date: 20110715
  Receipt Date: 20110711
  Transmission Date: 20111222
  Serious: Yes (Other)
  Sender: FDA-Public Use
  Company Number: US-TEVA-290041USA

PATIENT
  Age: 73 Year
  Sex: Male

DRUGS (4)
  1. RITUXIMAB [Interacting]
  2. VINCRISTINE [Interacting]
  3. CYTARABINE [Suspect]
  4. SUCCINYLCHOLINE CHLORIDE [Interacting]

REACTIONS (3)
  - APNOEA [None]
  - NEUROMUSCULAR BLOCKADE [None]
  - DRUG INTERACTION [None]
